FAERS Safety Report 9335125 (Version 4)
Quarter: 2013Q3

REPORT INFORMATION
  Report Type: Spontaneous
  Country: US (occurrence: US)
  Receive Date: 20130606
  Receipt Date: 20130715
  Transmission Date: 20140515
  Serious: Yes (Other)
  Sender: FDA-Public Use
  Company Number: US-GLAXOSMITHKLINE-A1025751A

PATIENT
  Age: 75 Year
  Sex: Female
  Weight: 94.5 kg

DRUGS (6)
  1. TYKERB [Suspect]
     Indication: BREAST CANCER
     Dosage: 750MG PER DAY
     Route: 048
     Dates: start: 20130522, end: 20130530
  2. AROMASIN [Concomitant]
  3. FLUDROCORTISONE [Concomitant]
  4. LEVOTHYROXIN [Concomitant]
  5. HYDROCORT [Concomitant]
  6. BENICAR [Concomitant]

REACTIONS (8)
  - Cardiac failure congestive [Unknown]
  - Rash [Unknown]
  - Skin ulcer [Unknown]
  - Dyspnoea [Unknown]
  - Decreased appetite [Unknown]
  - Cough [Unknown]
  - Malaise [Unknown]
  - Rash macular [Unknown]
